FAERS Safety Report 5290064-8 (Version None)
Quarter: 2007Q1

REPORT INFORMATION
  Report Type: 
  Country: None (occurrence: None)
  Receive Date: 20070330
  Receipt Date: 20070323
  Transmission Date: 20070707
  Serious: Yes (Hospitalization)
  Sender: FDA-Public Use
  Company Number: 15563

PATIENT
  Age: 65 Year
  Sex: Female

DRUGS (6)
  1. CYTARABINE [Suspect]
     Indication: ACUTE MYELOID LEUKAEMIA
     Dosage: 20 MG DAILY SC
     Route: 058
     Dates: start: 20061102
  2. CYTARABINE [Suspect]
     Indication: ACUTE MYELOID LEUKAEMIA
     Dates: start: 20061204
  3. NYSTATIN [Concomitant]
  4. RIFATAR [Concomitant]
  5. ETHAMBUTOL HYDROCHLORIDE [Concomitant]
  6. VITAMIN B6 [Concomitant]

REACTIONS (7)
  - BLOOD PRESSURE INCREASED [None]
  - HAEMOGLOBIN DECREASED [None]
  - LYMPHADENOPATHY [None]
  - PARAPHARYNGEAL ABSCESS [None]
  - PNEUMONIA [None]
  - RED BLOOD CELL COUNT DECREASED [None]
  - WHITE BLOOD CELL COUNT DECREASED [None]
